FAERS Safety Report 16938916 (Version 1)
Quarter: 2019Q4

REPORT INFORMATION
  Report Type: Spontaneous
  Country: CA (occurrence: CA)
  Receive Date: 20191020
  Receipt Date: 20191020
  Transmission Date: 20200122
  Serious: Yes (Other)
  Sender: FDA-Public Use
  Company Number: NVSC2019CA004301

PATIENT

DRUGS (7)
  1. REMICADE [Suspect]
     Active Substance: INFLIXIMAB
     Indication: BLAU SYNDROME
     Dosage: UNK
     Route: 065
  2. HUMIRA [Suspect]
     Active Substance: ADALIMUMAB
     Indication: BLAU SYNDROME
     Dosage: UNK
     Route: 065
  3. MYOCRISNE [Suspect]
     Active Substance: GOLD SODIUM THIOMALATE
     Indication: BLAU SYNDROME
     Dosage: UNK
     Route: 065
  4. LEFLUNOMIDE. [Suspect]
     Active Substance: LEFLUNOMIDE
     Indication: BLAU SYNDROME
     Dosage: UNK
     Route: 065
  5. METHOTREXATE SODIUM. [Suspect]
     Active Substance: METHOTREXATE SODIUM
     Indication: BLAU SYNDROME
     Dosage: UNK
     Route: 065
  6. ARALEN [Suspect]
     Active Substance: CHLOROQUINE PHOSPHATE
     Indication: BLAU SYNDROME
     Dosage: UNK
     Route: 065
  7. PLAQUENIL [Suspect]
     Active Substance: HYDROXYCHLOROQUINE SULFATE
     Indication: BLAU SYNDROME
     Dosage: UNK
     Route: 065

REACTIONS (5)
  - Polyarthritis [Unknown]
  - Constipation [Unknown]
  - Uveitis [Unknown]
  - Skin lesion [Unknown]
  - Treatment failure [Unknown]
